FAERS Safety Report 9837542 (Version 1)
Quarter: 2013Q4

REPORT INFORMATION
  Report Type: Spontaneous
  Country: US (occurrence: None)
  Receive Date: 20131125
  Receipt Date: 20131125
  Transmission Date: 20140711
  Serious: Yes (Other)
  Sender: FDA-Public Use
  Company Number: ALL1-2012-05364

PATIENT
  Age: 51 Year
  Sex: Female
  Weight: 72.6 kg

DRUGS (3)
  1. CARBATROL EXTENDED RELEASE (CARBAMAZEPINE) CAPSULE [Suspect]
     Indication: CONVULSION
     Route: 048
     Dates: start: 2004
  2. DEPAKOTE (VALPROATE SEMISODIUM) [Concomitant]
  3. CLONAZEPAM (CLONAZEPAM) [Concomitant]

REACTIONS (1)
  - Convulsion [None]
